FAERS Safety Report 14226888 (Version 2)
Quarter: 2017Q4

REPORT INFORMATION
  Report Type: Spontaneous
  Country: TR (occurrence: TR)
  Receive Date: 20171127
  Receipt Date: 20171206
  Transmission Date: 20180321
  Serious: Yes (Other)
  Sender: FDA-Public Use
  Company Number: TR-PFIZER INC-2017501439

PATIENT
  Age: 27 Year
  Sex: Male

DRUGS (3)
  1. LYRICA [Suspect]
     Active Substance: PREGABALIN
     Indication: NEURALGIA
     Dosage: 2 DOSES OF 300 MG, UNK
  2. LYRICA [Suspect]
     Active Substance: PREGABALIN
     Dosage: 1 DOSE (300 MG), UNK
  3. LYRICA [Suspect]
     Active Substance: PREGABALIN
     Dosage: 3-4 DOSES OF (300 MG)
     Dates: start: 2014

REACTIONS (11)
  - Decreased appetite [Unknown]
  - Dizziness [Unknown]
  - Overdose [Unknown]
  - Somnolence [Not Recovered/Not Resolved]
  - Drug dependence [Not Recovered/Not Resolved]
  - Suicidal ideation [Unknown]
  - Withdrawal syndrome [Not Recovered/Not Resolved]
  - Intentional product misuse [Unknown]
  - Aggression [Unknown]
  - Feeling abnormal [Not Recovered/Not Resolved]
  - Pain [Unknown]
